FAERS Safety Report 6972478-0 (Version None)
Quarter: 2010Q3

REPORT INFORMATION
  Report Type: 
  Country: None (occurrence: None)
  Receive Date: 20100909
  Receipt Date: 20100901
  Transmission Date: 20110219
  Serious: Yes (Hospitalization, Other)
  Sender: FDA-Public Use
  Company Number: US-BAYER-201030676NA

PATIENT
  Age: 65 Year
  Sex: Male
  Weight: 70 kg

DRUGS (3)
  1. SORAFENIB [Suspect]
     Indication: MYELODYSPLASTIC SYNDROME
     Dosage: TOTAL DAILY DOSE: 800 MG  UNIT DOSE: 200 MG
     Route: 048
     Dates: start: 20100723, end: 20100811
  2. PRILOSEC OTC [Concomitant]
     Dosage: TOTAL DAILY DOSE: 1 DF
     Route: 048
     Dates: start: 20100723
  3. ALLEGRA D 24 HOUR [Concomitant]
     Dosage: TOTAL DAILY DOSE: 1 DF
     Route: 048

REACTIONS (2)
  - FEBRILE NEUTROPENIA [None]
  - MYOSITIS [None]
